FAERS Safety Report 7320535-1 (Version None)
Quarter: 2011Q1

REPORT INFORMATION
  Report Type: 
  Country: None (occurrence: None)
  Receive Date: 20110228
  Receipt Date: 20110221
  Transmission Date: 20110831
  Serious: Yes (Hospitalization)
  Sender: FDA-Public Use
  Company Number: GB-TEVA-199031ISR

PATIENT
  Sex: Female

DRUGS (1)
  1. METOPROLOL [Suspect]
     Indication: ANGINA PECTORIS
     Dosage: 12.5 MG 3 TIMES A DAY
     Route: 048

REACTIONS (12)
  - DYSKINESIA [None]
  - CHEST PAIN [None]
  - VISUAL IMPAIRMENT [None]
  - HEART RATE ABNORMAL [None]
  - LOWER RESPIRATORY TRACT INFECTION [None]
  - BLOOD PRESSURE DECREASED [None]
  - ABASIA [None]
  - HEADACHE [None]
  - DYSPNOEA [None]
  - PARAESTHESIA [None]
  - MALAISE [None]
  - LOSS OF CONSCIOUSNESS [None]
